FAERS Safety Report 9210374 (Version 1)
Quarter: 2013Q2

REPORT INFORMATION
  Report Type: Spontaneous
  Country: JP (occurrence: JP)
  Receive Date: 20130404
  Receipt Date: 20130404
  Transmission Date: 20140414
  Serious: Yes (Other)
  Sender: FDA-Public Use
  Company Number: JP-ASTRAZENECA-2013SE21369

PATIENT
  Age: 39 Year
  Sex: Male

DRUGS (1)
  1. TENORMIN [Suspect]
     Dosage: 50
     Route: 048
     Dates: start: 201203, end: 201205

REACTIONS (2)
  - Erythema multiforme [Unknown]
  - Drug-induced liver injury [Unknown]
